FAERS Safety Report 5746334-X (Version None)
Quarter: 2008Q2

REPORT INFORMATION
  Report Type: 
  Country: None (occurrence: None)
  Receive Date: 20080522
  Receipt Date: 20080514
  Transmission Date: 20081010
  Serious: Yes (Other)
  Sender: FDA-Public Use
  Company Number: PHHY2008CA06007

PATIENT
  Age: 55 Year
  Sex: Male

DRUGS (5)
  1. WARFARIN SODIUM [Concomitant]
     Dosage: UNK, QD
  2. VITAMIN CAP [Concomitant]
     Dosage: UNK, QD
  3. GRAPE SEED EXTRACT [Concomitant]
  4. PHYTO IMMUNE [Concomitant]
  5. SANDOSTATIN LAR [Suspect]
     Indication: NEUROENDOCRINE TUMOUR
     Dosage: 40 MG EVERY 4 WEEKS
     Route: 030
     Dates: start: 20050520

REACTIONS (4)
  - CARDIAC PACEMAKER INSERTION [None]
  - ELECTROCARDIOGRAM AMBULATORY [None]
  - HEART RATE IRREGULAR [None]
  - LOSS OF CONSCIOUSNESS [None]
